FAERS Safety Report 25688900 (Version 1)
Quarter: 2025Q3

REPORT INFORMATION
  Report Type: Spontaneous
  Country: EU (occurrence: EU)
  Receive Date: 20250818
  Receipt Date: 20250818
  Transmission Date: 20251021
  Serious: Yes (Other)
  Sender: ABBVIE
  Company Number: None

PATIENT
  Age: 47 Year
  Sex: Female
  Weight: 77 kg

DRUGS (2)
  1. HUMIRA [Suspect]
     Active Substance: ADALIMUMAB
     Indication: Crohn^s disease
     Dosage: 40 MG
     Route: 058
     Dates: start: 20140328, end: 20180904
  2. HUMIRA [Suspect]
     Active Substance: ADALIMUMAB
     Dosage: 90 MG
     Route: 058
     Dates: start: 20190618, end: 202101

REACTIONS (1)
  - Cutaneous B-cell lymphoma [Recovering/Resolving]

NARRATIVE: CASE EVENT DATE: 20200101
